FAERS Safety Report 6169507-3 (Version None)
Quarter: 2009Q2

REPORT INFORMATION
  Report Type: 
  Country: None (occurrence: None)
  Receive Date: 20090428
  Receipt Date: 20090417
  Transmission Date: 20091009
  Serious: Yes (Hospitalization, Other)
  Sender: FDA-Public Use
  Company Number: GB-JNJFOC-20090404479

PATIENT
  Age: 76 Year
  Sex: Female

DRUGS (9)
  1. REMICADE [Suspect]
     Indication: RHEUMATOID ARTHRITIS
     Route: 042
  2. PREDNISOLONE [Concomitant]
  3. ADCAL [Concomitant]
  4. ALENDRONATE [Concomitant]
  5. FERROUS SULFATE TAB [Concomitant]
  6. FOLIC ACID [Concomitant]
  7. LANSOPRAZOLE [Concomitant]
  8. NABUMETONE [Concomitant]
  9. PENICILLAMINE [Concomitant]

REACTIONS (1)
  - SQUAMOUS CELL CARCINOMA [None]
